FAERS Safety Report 12657487 (Version 3)
Quarter: 2016Q3

REPORT INFORMATION
  Report Type: Spontaneous
  Country: DE (occurrence: DE)
  Receive Date: 20160816
  Receipt Date: 20160906
  Transmission Date: 20161109
  Serious: Yes (Other)
  Sender: FDA-Public Use
  Company Number: DE-TAKEDA-2016TEU004335

PATIENT
  Age: 83 Year
  Sex: Female

DRUGS (1)
  1. TACHOSIL [Suspect]
     Active Substance: FIBRINOGEN HUMAN\THROMBIN HUMAN
     Indication: HAEMORRHAGE
     Dosage: UNK
     Route: 065
     Dates: start: 20160108

REACTIONS (4)
  - Product quality issue [Unknown]
  - Graft versus host disease [Unknown]
  - Transmission of an infectious agent via product [Unknown]
  - Hepatitis C [Unknown]

NARRATIVE: CASE EVENT DATE: 20160725
